FAERS Safety Report 6341927-3 (Version None)
Quarter: 2009Q3

REPORT INFORMATION
  Report Type: 
  Country: None (occurrence: None)
  Receive Date: 20090904
  Receipt Date: 20090828
  Transmission Date: 20100115
  Serious: Yes (Hospitalization)
  Sender: FDA-Public Use
  Company Number: PHHO2008DE14881

PATIENT
  Sex: Male
  Weight: 83 kg

DRUGS (8)
  1. RAD 666 RAD+TAB [Suspect]
     Indication: NON-SMALL CELL LUNG CANCER
     Dosage: 5 MG DAILY
     Dates: start: 20081201, end: 20081212
  2. RAD 666 RAD+TAB [Suspect]
     Dosage: NO TREATMENT
     Dates: start: 20081213, end: 20081219
  3. RAD 666 RAD+TAB [Suspect]
     Dosage: 2.5 MG, QD
     Route: 048
     Dates: start: 20081220, end: 20081228
  4. RAD 666 RAD+TAB [Suspect]
     Dosage: NO TREATMENT
     Dates: start: 20081229, end: 20090108
  5. RAD 666 RAD+TAB [Suspect]
     Dosage: 2.5 MG, QD
     Route: 048
     Dates: start: 20090109
  6. CARBOPLATIN [Suspect]
     Dosage: UNK
     Dates: start: 20081201
  7. PACLITAXEL [Suspect]
     Dosage: UNK
     Dates: start: 20081201
  8. BEVACIZUMAB [Suspect]
     Dosage: UNK
     Dates: start: 20081201

REACTIONS (9)
  - COLITIS [None]
  - DECREASED APPETITE [None]
  - DIARRHOEA [None]
  - FATIGUE [None]
  - GASTROENTERITIS [None]
  - HYPOKALAEMIA [None]
  - LEUKOPENIA [None]
  - PYREXIA [None]
  - THROMBOCYTOPENIA [None]
